FAERS Safety Report 8184351-3 (Version None)
Quarter: 2012Q1

REPORT INFORMATION
  Report Type: 
  Country: None (occurrence: None)
  Receive Date: 20120305
  Receipt Date: 20120221
  Transmission Date: 20120608
  Serious: Yes (Hospitalization, Other)
  Sender: FDA-Public Use
  Company Number: US-ELI_LILLY_AND_COMPANY-US200910007344

PATIENT
  Sex: Male

DRUGS (5)
  1. PROTONIX [Concomitant]
  2. ZYPREXA [Suspect]
     Indication: BIPOLAR DISORDER
     Dosage: 10 MG, EACH EVENING
     Route: 048
     Dates: start: 20031101
  3. METOPROLOL SUCCINATE [Concomitant]
  4. PROZAC [Concomitant]
  5. OSCAL D [Concomitant]

REACTIONS (17)
  - CELLULITIS [None]
  - URINARY TRACT INFECTION [None]
  - SEPSIS [None]
  - HYPERTRIGLYCERIDAEMIA [None]
  - THROMBOCYTOPENIA [None]
  - BLOOD ALKALINE PHOSPHATASE INCREASED [None]
  - DIABETIC KETOACIDOSIS [None]
  - DEEP VEIN THROMBOSIS [None]
  - HAEMOGLOBIN INCREASED [None]
  - LEUKOCYTOSIS [None]
  - PANCREATITIS ACUTE [None]
  - DIABETES MELLITUS [None]
  - RENAL FAILURE [None]
  - ANAEMIA [None]
  - HEPATIC STEATOSIS [None]
  - ASPARTATE AMINOTRANSFERASE INCREASED [None]
  - HYPERLIPIDAEMIA [None]
